FAERS Safety Report 4853437-0 (Version None)
Quarter: 2005Q4

REPORT INFORMATION
  Report Type: 
  Country: None (occurrence: None)
  Receive Date: 20051214
  Receipt Date: 20051003
  Transmission Date: 20060501
  Serious: Yes (Other)
  Sender: FDA-Public Use
  Company Number: US-MERCK-0510USA02708

PATIENT
  Age: 78 Year
  Sex: Female
  Weight: 67 kg

DRUGS (7)
  1. VIOXX [Suspect]
     Route: 048
     Dates: end: 20041001
  2. TRUSOPT [Concomitant]
     Route: 065
  3. NORVASC [Concomitant]
     Route: 065
  4. TRAVATAN [Concomitant]
     Route: 065
  5. PROTONIX [Concomitant]
     Route: 065
  6. LEVOXYL [Concomitant]
     Route: 065
  7. CALCIUM (UNSPECIFIED) [Concomitant]
     Route: 065

REACTIONS (3)
  - ANGINA PECTORIS [None]
  - CARDIAC FAILURE CONGESTIVE [None]
  - CEREBROVASCULAR ACCIDENT [None]
